FAERS Safety Report 4975662-0 (Version None)
Quarter: 2006Q2

REPORT INFORMATION
  Report Type: 
  Country: None (occurrence: None)
  Receive Date: 20060411
  Receipt Date: 20060330
  Transmission Date: 20061013
  Serious: Yes (Hospitalization)
  Sender: FDA-Public Use
  Company Number: 2006BH007264

PATIENT
  Age: 3 Year
  Sex: Male
  Weight: 14.0615 kg

DRUGS (5)
  1. PROMETHAZINE [Suspect]
     Indication: MEDICATION ERROR
     Dosage: 20 MG; ONCE; IV
     Route: 042
     Dates: start: 20060327, end: 20060327
  2. ANTIBIOTICS [Concomitant]
  3. ALBUTEROL SULFATE AUTOHALER [Concomitant]
  4. SODIUM CHLORIDE [Concomitant]
  5. DECADRON [Concomitant]

REACTIONS (8)
  - DRUG ADMINISTRATION ERROR [None]
  - EXCITABILITY [None]
  - PNEUMONIA [None]
  - PRURITUS [None]
  - SCRATCH [None]
  - SCREAMING [None]
  - SOMNOLENCE [None]
  - WRONG DRUG ADMINISTERED [None]
